FAERS Safety Report 4283444-0 (Version None)
Quarter: 2004Q1

REPORT INFORMATION
  Report Type: 
  Country: None (occurrence: None)
  Receive Date: 20040121
  Receipt Date: 20031015
  Transmission Date: 20041129
  Serious: Yes (Hospitalization)
  Sender: FDA-Public Use
  Company Number: A03200302455

PATIENT
  Age: 61 Year
  Sex: Male
  Weight: 100.6985 kg

DRUGS (15)
  1. PLAVIX [Suspect]
     Indication: TRANSIENT ISCHAEMIC ATTACK
     Dosage: 75 MG QD - ORAL
     Route: 048
     Dates: start: 20020301, end: 20030919
  2. SPIRONOLACTONE [Concomitant]
  3. PENGITOXIN [Concomitant]
  4. OMEPRAZOLE [Concomitant]
  5. TAMSULOSIN HYDROCHLORIDE [Concomitant]
  6. ROSIGLITAZONE MALEATE [Concomitant]
  7. FOLIC ACID [Concomitant]
  8. FERROUS SULFATE TAB [Concomitant]
  9. VITAMIN K TAB [Concomitant]
  10. LACTULOSE [Concomitant]
  11. INSULIN [Concomitant]
  12. NADOLOL [Concomitant]
  13. TETRACYCLINE [Concomitant]
  14. HYDROCORTISONE [Concomitant]
  15. CARISOPRODOL [Concomitant]

REACTIONS (5)
  - CEREBROVASCULAR ACCIDENT [None]
  - DRUG INEFFECTIVE [None]
  - HAEMOGLOBIN DECREASED [None]
  - HAEMORRHAGE [None]
  - RECTAL HAEMORRHAGE [None]
